FAERS Safety Report 18071730 (Version 1)
Quarter: 2020Q3

REPORT INFORMATION
  Report Type: Spontaneous
  Country: US (occurrence: US)
  Receive Date: 20200727
  Receipt Date: 20200727
  Transmission Date: 20201103
  Serious: Yes (Other)
  Sender: FDA-Public Use
  Company Number: US-SHILPA MEDICARE LIMITED-SML-US-2020-00203

PATIENT
  Age: 26 Year
  Sex: Female

DRUGS (3)
  1. GEMCITABINE, UNKNOWN [Suspect]
     Active Substance: GEMCITABINE
     Indication: OSTEOSARCOMA
     Dosage: DAYS 1 AND 8
     Route: 042
  2. GEMCITABINE, UNKNOWN [Suspect]
     Active Substance: GEMCITABINE
     Indication: OSTEOSARCOMA
     Dosage: DAYS 1 AND 8
     Route: 042
  3. RIBOCICLIB. [Suspect]
     Active Substance: RIBOCICLIB
     Indication: OSTEOSARCOMA
     Dosage: (DAYS 8 TO 14 INITIALLY AND THEN INCREASED TO DAILY/ CONTINUOUS DOSING AFTER THE FIRST CYCLE)
     Route: 048

REACTIONS (4)
  - Neutropenia [Unknown]
  - Oedema peripheral [Unknown]
  - Malignant neoplasm progression [Unknown]
  - Thrombocytopenia [Unknown]
